FAERS Safety Report 6818779-8 (Version None)
Quarter: 2010Q2

REPORT INFORMATION
  Report Type: 
  Country: None (occurrence: None)
  Receive Date: 20100630
  Receipt Date: 20100617
  Transmission Date: 20101027
  Serious: Yes (Hospitalization)
  Sender: FDA-Public Use
  Company Number: 2009SP006363

PATIENT
  Age: 63 Year
  Sex: Male
  Weight: 74.8435 kg

DRUGS (4)
  1. PEG-INTRON [Suspect]
     Indication: HEPATITIS C
     Dosage: 120 MCG;QD;SC
     Route: 058
     Dates: start: 20081118, end: 20090320
  2. REBETOL [Suspect]
     Indication: HEPATITIS C
     Dosage: 1000MG;QD;PO
     Route: 048
     Dates: start: 20081118, end: 20090320
  3. PLACEBO [Suspect]
     Indication: HEPATITIS C
     Dosage: 800MG;TID;PO
     Route: 048
     Dates: start: 20081216, end: 20090320
  4. NORVASC [Concomitant]

REACTIONS (6)
  - ANXIETY [None]
  - MYCOBACTERIAL INFECTION [None]
  - SINUS CONGESTION [None]
  - SPUTUM CULTURE POSITIVE [None]
  - STAPHYLOCOCCAL INFECTION [None]
  - WHEEZING [None]
